FAERS Safety Report 7210180-0 (Version None)
Quarter: 2011Q1

REPORT INFORMATION
  Report Type: 
  Country: None (occurrence: None)
  Receive Date: 20110105
  Receipt Date: 20101228
  Transmission Date: 20110831
  Serious: Yes (Hospitalization, Other)
  Sender: FDA-Public Use
  Company Number: FR-JNJFOC-20101208697

PATIENT
  Sex: Female
  Weight: 41 kg

DRUGS (9)
  1. COAPROVEL [Suspect]
     Indication: PRODUCT USED FOR UNKNOWN INDICATION
     Route: 048
  2. RENUTRYL [Concomitant]
     Route: 065
  3. SOLUPRED [Suspect]
     Indication: PRODUCT USED FOR UNKNOWN INDICATION
     Route: 065
  4. CEFPODOXIME PROXETIL [Concomitant]
     Indication: BRONCHITIS
     Route: 048
  5. DURAGESIC-100 [Suspect]
     Indication: MUSCULOSKELETAL CHEST PAIN
     Route: 062
  6. SINGULAIR [Concomitant]
     Route: 048
  7. KARDEGIC [Concomitant]
     Route: 048
  8. FORADIL [Concomitant]
     Route: 055
  9. FLIXOTIDE [Concomitant]
     Route: 055

REACTIONS (7)
  - CONFUSIONAL STATE [None]
  - INFLAMMATION [None]
  - FOOD INTOLERANCE [None]
  - VOMITING [None]
  - RENAL FAILURE CHRONIC [None]
  - DECREASED APPETITE [None]
  - DEHYDRATION [None]
